FAERS Safety Report 10624640 (Version 1)
Quarter: 2014Q4

REPORT INFORMATION
  Report Type: Report from Study
  Country: US (occurrence: US)
  Receive Date: 20141203
  Receipt Date: 20141203
  Transmission Date: 20150529
  Serious: Yes (Disabling)
  Sender: FDA-Public Use
  Company Number: US-AMGEN INC.-USASL2014093638

PATIENT
  Age: 62 Year
  Sex: Female
  Weight: 96.15 kg

DRUGS (1)
  1. ENBREL [Suspect]
     Active Substance: ETANERCEPT
     Indication: RHEUMATOID ARTHRITIS
     Dosage: 50 MG, QWK
     Route: 065
     Dates: start: 201408

REACTIONS (2)
  - Injection site erythema [Recovered/Resolved with Sequelae]
  - Injection site pruritus [Recovered/Resolved with Sequelae]

NARRATIVE: CASE EVENT DATE: 201408
